FAERS Safety Report 5065937-1 (Version None)
Quarter: 2006Q3

REPORT INFORMATION
  Report Type: 
  Country: None (occurrence: None)
  Receive Date: 20060731
  Receipt Date: 20060620
  Transmission Date: 20061208
  Serious: Yes (Hospitalization)
  Sender: FDA-Public Use
  Company Number: GB-BRISTOL-MYERS SQUIBB COMPANY-13418215

PATIENT
  Age: 73 Year
  Sex: Female

DRUGS (11)
  1. ORENCIA [Suspect]
     Indication: RHEUMATOID ARTHRITIS
     Route: 042
     Dates: start: 20041011
  2. ACETAMINOPHEN [Concomitant]
     Dates: start: 20060101
  3. CALCICHEW D3 [Concomitant]
     Dates: start: 20020101
  4. ASPIRIN [Concomitant]
     Dates: start: 19780101
  5. CODEINE PHOSPHATE [Concomitant]
     Dates: start: 20060101
  6. ALENDRONIC ACID [Concomitant]
     Dates: start: 20060101
  7. METHOTREXATE [Concomitant]
     Dates: start: 20010517
  8. FOLIC ACID [Concomitant]
     Dates: start: 20010518
  9. OMEPRAZOLE [Concomitant]
     Dates: start: 20040101
  10. NABUMETONE [Concomitant]
  11. PREDNISOLONE [Concomitant]
     Dates: end: 20050718

REACTIONS (2)
  - MALAISE [None]
  - SOFT TISSUE INFECTION [None]
